FAERS Safety Report 8957210 (Version 1)
Quarter: 2012Q4

REPORT INFORMATION
  Report Type: Report from Study
  Country: HU (occurrence: HU)
  Receive Date: 20121211
  Receipt Date: 20121211
  Transmission Date: 20130627
  Serious: Yes (Other)
  Sender: FDA-Public Use
  Company Number: HU-UCBSA-072687

PATIENT
  Age: 24 Year
  Sex: Female
  Weight: 36.5 kg

DRUGS (1)
  1. CERTOLIZUMAB PEGOL [Suspect]
     Indication: CROHN^S DISEASE
     Route: 058

REACTIONS (1)
  - Pyelonephritis [Recovered/Resolved]
